FAERS Safety Report 11081240 (Version 1)
Quarter: 2015Q2

REPORT INFORMATION
  Report Type: Spontaneous
  Country: US (occurrence: None)
  Receive Date: 20150427
  Receipt Date: 20150427
  Transmission Date: 20150821
  Serious: Yes (Hospitalization)
  Sender: FDA-Public Use
  Company Number: 1713747-2015-999130

PATIENT
  Age: 69 Year
  Sex: Female

DRUGS (7)
  1. LIPITOR [Concomitant]
     Active Substance: ATORVASTATIN CALCIUM
  2. CALCIUM ACETATE. [Concomitant]
     Active Substance: CALCIUM ACETATE
  3. CLOBESTASOL [Concomitant]
  4. EPOGEN [Concomitant]
     Active Substance: ERYTHROPOIETIN
  5. DELFLEX [Suspect]
     Active Substance: CALCIUM CHLORIDE\DEXTROSE MONOHYDRATE\MAGNESIUM CHLORIDE\SODIUM CHLORIDE\SODIUM LACTATE
     Indication: PERITONEAL DIALYSIS
     Route: 033
  6. ALBUTEROL. [Concomitant]
     Active Substance: ALBUTEROL
  7. ASPRIN [Concomitant]
     Active Substance: ASPIRIN

REACTIONS (1)
  - Peritonitis [None]

NARRATIVE: CASE EVENT DATE: 201304
